FAERS Safety Report 9156229 (Version 1)
Quarter: 2013Q1

REPORT INFORMATION
  Report Type: Spontaneous
  Country: TR (occurrence: TR)
  Receive Date: 20130212
  Receipt Date: 20130212
  Transmission Date: 20140127
  Serious: Yes (Death)
  Sender: FDA-Public Use
  Company Number: TR-BRACCO-000048

PATIENT
  Age: 72 Year
  Sex: Male

DRUGS (2)
  1. BARIUM SULFATE [Suspect]
     Indication: BARIUM DOUBLE CONTRAST
  2. AMLODIPINE [Concomitant]
     Indication: HYPERTENSION

REACTIONS (2)
  - Rectal perforation [Unknown]
  - Cardio-respiratory arrest [Fatal]
